FAERS Safety Report 23927384 (Version 1)
Quarter: 2024Q2

REPORT INFORMATION
  Report Type: Spontaneous
  Country: US (occurrence: US)
  Receive Date: 20240531
  Receipt Date: 20240531
  Transmission Date: 20240715
  Serious: No
  Sender: FDA-Public Use
  Company Number: US-BRISTOL-MYERS SQUIBB COMPANY-2024-087799

PATIENT
  Age: 89 Year
  Sex: Male

DRUGS (2)
  1. IDHIFA [Suspect]
     Active Substance: ENASIDENIB MESYLATE
     Indication: Myelodysplastic syndrome
     Route: 048
  2. IDHIFA [Suspect]
     Active Substance: ENASIDENIB MESYLATE

REACTIONS (3)
  - Vomiting [Unknown]
  - Diarrhoea [Unknown]
  - Off label use [Unknown]
